FAERS Safety Report 9601352 (Version 2)
Quarter: 2013Q4

REPORT INFORMATION
  Report Type: Spontaneous
  Country: AU (occurrence: AU)
  Receive Date: 20131007
  Receipt Date: 20131217
  Transmission Date: 20140711
  Serious: Yes (Other)
  Sender: FDA-Public Use
  Company Number: AU-MERCK-1309AUS013107

PATIENT
  Age: 75 Year
  Sex: Male

DRUGS (4)
  1. BRIDION [Suspect]
     Dosage: UNK
  2. BRIDION [Suspect]
     Dosage: 200 MG, 5 MINUTES AFER THE FIRST DOSE
  3. ROCURONIUM BROMIDE [Suspect]
  4. NEOSTIGMINE METHYLSULFATE [Concomitant]

REACTIONS (5)
  - Endotracheal intubation [Unknown]
  - Hypersensitivity [Unknown]
  - Carbon dioxide increased [Unknown]
  - Incorrect dose administered [Unknown]
  - Tachycardia [Unknown]
